FAERS Safety Report 7474973-7 (Version None)
Quarter: 2011Q1

REPORT INFORMATION
  Report Type: 
  Country: None (occurrence: None)
  Receive Date: 20110302
  Receipt Date: 20100917
  Transmission Date: 20110831
  Serious: Yes (Hospitalization, Other)
  Sender: FDA-Public Use
  Company Number: 163-21880-10091827

PATIENT
  Age: 53 Year
  Sex: Male

DRUGS (2)
  1. REVLIMID [Suspect]
     Indication: MULTIPLE MYELOMA
     Dosage: 10 MG, QD X 24 DAYS, PO; 10 MG, 1 IN 1 D, PO
     Route: 048
     Dates: start: 20100825, end: 20100830
  2. REVLIMID [Suspect]
     Indication: MULTIPLE MYELOMA
     Dosage: 10 MG, QD X 24 DAYS, PO; 10 MG, 1 IN 1 D, PO
     Route: 048
     Dates: start: 20100905

REACTIONS (2)
  - LOWER LIMB FRACTURE [None]
  - SYNCOPE [None]
